FAERS Safety Report 5162993-7 (Version None)
Quarter: 2006Q4

REPORT INFORMATION
  Report Type: 
  Country: None (occurrence: None)
  Receive Date: 20061201
  Receipt Date: 20061122
  Transmission Date: 20070319
  Serious: Yes (Hospitalization)
  Sender: FDA-Public Use
  Company Number: IT-JNJFOC-20061104952

PATIENT
  Age: 54 Year
  Sex: Male

DRUGS (3)
  1. TAVANIC [Suspect]
     Indication: PROSTATITIS
     Route: 048
     Dates: start: 20050219, end: 20060225
  2. TAMSULOSIN HCL [Suspect]
     Indication: BENIGN PROSTATIC HYPERPLASIA
     Route: 048
     Dates: start: 20030308, end: 20050221
  3. SERENOA REPENS [Concomitant]
     Route: 065

REACTIONS (2)
  - LOSS OF CONSCIOUSNESS [None]
  - PSYCHOMOTOR HYPERACTIVITY [None]
